FAERS Safety Report 7875239-3 (Version None)
Quarter: 2011Q4

REPORT INFORMATION
  Report Type: 
  Country: None (occurrence: None)
  Receive Date: 20111031
  Receipt Date: 20111024
  Transmission Date: 20120403
  Serious: Yes (Life-Threatening, Hospitalization, Disabling, Other)
  Sender: FDA-Public Use
  Company Number: JP-CELGENEUS-087-21880-11053660

PATIENT
  Sex: Female

DRUGS (38)
  1. REVLIMID [Suspect]
     Dosage: 25 MILLIGRAM
     Route: 048
     Dates: start: 20110525, end: 20110531
  2. DOXORUBICIN HYDROCHLORIDE [Suspect]
     Dosage: 14.14 MILLIGRAM
     Route: 041
     Dates: start: 20110517, end: 20110520
  3. KYTRIL [Concomitant]
     Indication: PROPHYLAXIS
     Dosage: 6 MILLIGRAM
     Route: 041
     Dates: start: 20110328, end: 20110331
  4. AMLODIPINE [Concomitant]
     Indication: HYPERTENSION
     Dosage: 5 MILLIGRAM
     Route: 048
     Dates: start: 20110328, end: 20110614
  5. REVLIMID [Suspect]
     Indication: MULTIPLE MYELOMA
     Dosage: 25 MILLIGRAM
     Route: 048
     Dates: start: 20110328, end: 20110404
  6. REVLIMID [Suspect]
     Dosage: 25 MILLIGRAM
     Route: 048
     Dates: start: 20110517, end: 20110523
  7. DOXORUBICIN HYDROCHLORIDE [Suspect]
     Indication: MULTIPLE MYELOMA
     Dosage: 14.44 MILLIGRAM
     Route: 041
     Dates: start: 20110328, end: 20110331
  8. UNKNOWNDRUG [Suspect]
     Dosage: 16.5 MILLIGRAM
     Route: 041
     Dates: start: 20110517, end: 20110520
  9. RECOMODULIN [Concomitant]
     Dosage: 12800 U
     Route: 041
     Dates: start: 20110328, end: 20110401
  10. MUCOSTA [Concomitant]
     Indication: PROPHYLAXIS
     Dosage: 300 MILLIGRAM
     Route: 048
     Dates: start: 20110328, end: 20110614
  11. REVLIMID [Suspect]
     Indication: REFRACTORY CANCER
     Dosage: 25 MILLIGRAM
     Route: 048
     Dates: start: 20110411, end: 20110416
  12. ONCOVIN [Suspect]
     Dosage: .4 MILLIGRAM
     Route: 041
     Dates: start: 20110517, end: 20110520
  13. UNKNOWNDRUG [Suspect]
     Dosage: 16.5 MILLIGRAM
     Route: 041
     Dates: start: 20110420, end: 20110423
  14. TENORMIN [Concomitant]
     Indication: HYPERTENSION
     Dosage: 50 MILLIGRAM
     Route: 048
     Dates: start: 20110328, end: 20110614
  15. SULFAMETHOXAZOLE [Concomitant]
     Indication: PROPHYLAXIS
     Dosage: 1 GRAM
     Route: 048
     Dates: start: 20110328, end: 20110614
  16. KYTRIL [Concomitant]
     Dosage: 6 MILLIGRAM
     Route: 041
     Dates: start: 20110420, end: 20110423
  17. NEUTROGIN [Concomitant]
     Indication: PROPHYLAXIS
     Dosage: 250 MICROGRAM
     Route: 041
     Dates: start: 20110401, end: 20110411
  18. IRRADIATED RED CELLS [Concomitant]
     Dosage: 2 U
     Route: 041
     Dates: start: 20110401, end: 20110401
  19. ONCOVIN [Suspect]
     Indication: MULTIPLE MYELOMA
     Dosage: .4 MILLIGRAM
     Route: 041
     Dates: start: 20110328, end: 20110331
  20. ONCOVIN [Suspect]
     Dosage: .4 MILLIGRAM
     Route: 041
     Dates: start: 20110420, end: 20110423
  21. RASURITEK [Concomitant]
     Indication: PROPHYLAXIS
     Dosage: 10.5 MILLIGRAM
     Route: 041
     Dates: start: 20110328, end: 20110331
  22. NEUTROGIN [Concomitant]
     Dosage: 100 MICROGRAM
     Route: 041
     Dates: start: 20110521, end: 20110526
  23. MEROPENEM [Concomitant]
     Indication: PROPHYLAXIS
     Dosage: 0.5-1.5G
     Route: 041
     Dates: start: 20110408, end: 20110411
  24. ZANTAC [Concomitant]
     Indication: PROPHYLAXIS
     Dosage: 150 MILLIGRAM
     Route: 048
     Dates: start: 20110328, end: 20110420
  25. PLATELETS [Concomitant]
     Dosage: 10 U
     Route: 041
     Dates: start: 20110328, end: 20110411
  26. ZOVIRAX [Concomitant]
     Indication: PROPHYLAXIS
     Dosage: 200 MILLIGRAM
     Route: 048
     Dates: start: 20110420, end: 20110614
  27. REVLIMID [Suspect]
     Dosage: 25 MILLIGRAM
     Route: 048
     Dates: start: 20110420, end: 20110503
  28. UNKNOWNDRUG [Suspect]
     Indication: MULTIPLE MYELOMA
     Dosage: 6.6 MILLIGRAM
     Route: 041
     Dates: start: 20110328, end: 20110328
  29. KYTRIL [Concomitant]
     Dosage: 6 MILLIGRAM
     Route: 041
     Dates: start: 20110517, end: 20110520
  30. ALENDRONATE SODIUM [Concomitant]
     Indication: PROPHYLAXIS
     Dosage: 35 MILLIGRAM
     Route: 048
     Dates: start: 20110328, end: 20110420
  31. NEUTROGIN [Concomitant]
     Dosage: 100 MICROGRAM
     Route: 041
     Dates: start: 20110424, end: 20110506
  32. CANDESARTAN CILEXETIL [Concomitant]
     Indication: HYPERTENSION
     Dosage: 4 MILLIGRAM
     Route: 048
     Dates: start: 20110328, end: 20110426
  33. FUNGIZONE [Concomitant]
     Indication: PROPHYLAXIS
     Dosage: 8 MILLILITER
     Route: 048
     Dates: start: 20110328, end: 20110614
  34. LYRICA [Concomitant]
     Dosage: 300 MILLIGRAM
     Route: 048
     Dates: start: 20110328, end: 20110614
  35. DOXORUBICIN HYDROCHLORIDE [Suspect]
     Dosage: 14.32 MILLIGRAM
     Route: 041
     Dates: start: 20110420, end: 20110423
  36. ASPIRIN [Concomitant]
     Indication: PROPHYLAXIS
     Dosage: 100 MILLIGRAM
     Route: 048
     Dates: start: 20110406, end: 20110614
  37. ZANTAC [Concomitant]
     Dosage: 300 MILLIGRAM
     Route: 048
     Dates: start: 20110420, end: 20110614
  38. ALENDRONATE SODIUM [Concomitant]
     Dosage: 35 MILLIGRAM
     Route: 048
     Dates: start: 20110422, end: 20110610

REACTIONS (15)
  - HEADACHE [None]
  - WHITE BLOOD CELL COUNT DECREASED [None]
  - CONSTIPATION [None]
  - PLATELET COUNT DECREASED [None]
  - NEUROPATHY PERIPHERAL [None]
  - METASTASES TO CENTRAL NERVOUS SYSTEM [None]
  - PANCYTOPENIA [None]
  - CARCINOEMBRYONIC ANTIGEN INCREASED [None]
  - VOMITING [None]
  - HYPERTENSION [None]
  - BACK PAIN [None]
  - DISSEMINATED INTRAVASCULAR COAGULATION [None]
  - GAIT DISTURBANCE [None]
  - RENAL IMPAIRMENT [None]
  - PAIN IN EXTREMITY [None]
